FAERS Safety Report 15834232 (Version 3)
Quarter: 2022Q1

REPORT INFORMATION
  Report Type: Report from Study
  Country: US (occurrence: US)
  Receive Date: 20190116
  Receipt Date: 20220120
  Transmission Date: 20220424
  Serious: Yes (Hospitalization)
  Sender: FDA-Public Use
  Company Number: US-VERTEX PHARMACEUTICALS-2019-000229

PATIENT
  Age: 21 Year
  Sex: Female
  Weight: 73 kg

DRUGS (13)
  1. ELEXACAFTOR\IVACAFTOR\TEZACAFTOR [Suspect]
     Active Substance: ELEXACAFTOR\IVACAFTOR\TEZACAFTOR
     Indication: Cystic fibrosis
     Dosage: UNK
     Route: 048
     Dates: start: 20190103
  2. POLYETHYLENE GLYCOL [Concomitant]
     Active Substance: POLYETHYLENE GLYCOL
     Indication: Constipation
     Dosage: 17 GRAM QD PRN
     Route: 048
     Dates: start: 20140924
  3. ZENPEP [Concomitant]
     Active Substance: PANCRELIPASE AMYLASE\PANCRELIPASE LIPASE\PANCRELIPASE PROTEASE
     Indication: Pancreatic failure
     Dosage: 5 CAPS W/MEALS; 3 CAPS W/SNACKS
     Route: 048
     Dates: start: 20110525
  4. PULMOZYME [Concomitant]
     Active Substance: DORNASE ALFA
     Indication: Cystic fibrosis lung
     Dosage: 2.5 MG, QD
     Route: 055
     Dates: start: 19991025
  5. ALBUTEROL [Concomitant]
     Active Substance: ALBUTEROL
     Indication: Cystic fibrosis lung
     Dosage: 2.5 MG, PRN
     Route: 055
     Dates: start: 2001
  6. URSODIOL [Concomitant]
     Active Substance: URSODIOL
     Indication: Transaminases increased
     Dosage: 300 MG, TID
     Route: 048
     Dates: start: 201511
  7. AQUADEKS                           /07679501/ [Concomitant]
     Indication: Pancreatic failure
     Dosage: 1 CAP, BID
     Route: 048
  8. EXCEDRIN                           /00110301/ [Concomitant]
     Indication: Headache
     Dosage: 2 TABS PRN
     Route: 048
     Dates: start: 2011
  9. IBUPROFEN [Concomitant]
     Active Substance: IBUPROFEN
     Indication: Dysmenorrhoea
     Dosage: 200 MG TID PRN
     Route: 048
     Dates: start: 2010
  10. NEXIUM                             /01479302/ [Concomitant]
     Indication: Gastrooesophageal reflux disease
     Dosage: 20 MG, QD
     Route: 048
     Dates: start: 20180815
  11. LACTULOSE [Concomitant]
     Active Substance: LACTULOSE
     Indication: Constipation
     Dosage: 60 MILLILITER, QD
     Route: 048
     Dates: start: 20180814
  12. LINEZOLID [Concomitant]
     Active Substance: LINEZOLID
     Indication: Infective pulmonary exacerbation of cystic fibrosis
     Dosage: UNK
     Dates: start: 20181212, end: 20181226
  13. PREDNISONE [Concomitant]
     Active Substance: PREDNISONE
     Dosage: TAPER
     Dates: start: 20181212, end: 20181221

REACTIONS (1)
  - Duodenitis [Recovered/Resolved]

NARRATIVE: CASE EVENT DATE: 20190107
